FAERS Safety Report 8956991 (Version 1)
Quarter: 2012Q4

REPORT INFORMATION
  Report Type: 
  Country: US (occurrence: US)
  Receive Date: 20121211
  Receipt Date: 20121211
  Transmission Date: 20130627
  Serious: Yes (Other)
  Sender: FDA-Public Use
  Company Number: US-BAYER-2012-129303

PATIENT
  Age: 35 Year
  Sex: Female

DRUGS (4)
  1. YAZ [Suspect]
  2. METFORMIN [Concomitant]
     Dosage: 500 mg, UNK
  3. HYDROXYZINE HCL [Concomitant]
     Dosage: 25 mg, UNK
  4. SEASONIQUE [Concomitant]

REACTIONS (1)
  - Deep vein thrombosis [Recovered/Resolved]
